FAERS Safety Report 9563456 (Version 1)
Quarter: 2013Q1

REPORT INFORMATION
  Report Type: Spontaneous
  Country: US (occurrence: None)
  Receive Date: 20121227
  Receipt Date: 20121227
  Transmission Date: 20140127
  Serious: Yes (Other)
  Sender: FDA-Public Use
  Company Number: PHEH2012US011756

PATIENT
  Age: 4 Year
  Sex: Female
  Weight: 12 kg

DRUGS (2)
  1. EXJADE [Suspect]
     Indication: IRON OVERLOAD
     Dosage: 52 MG/KG ( 625 MG, DAILY), ORAL
     Route: 048
     Dates: start: 20120212
  2. ZANTAC ( RANITIDINE HYDROCHLORIDE) [Concomitant]

REACTIONS (3)
  - Abdominal pain [None]
  - Cholelithiasis [None]
  - Blood bilirubin increased [None]
